FAERS Safety Report 18476471 (Version 16)
Quarter: 2025Q2

REPORT INFORMATION
  Report Type: Report from Study
  Country: CA (occurrence: CA)
  Receive Date: 20201106
  Receipt Date: 20250612
  Transmission Date: 20250716
  Serious: Yes (Hospitalization, Other)
  Sender: TAKEDA
  Company Number: CA-TAKEDA-2020TUS047226

PATIENT
  Sex: Male

DRUGS (10)
  1. VEDOLIZUMAB [Suspect]
     Active Substance: VEDOLIZUMAB
     Indication: Crohn^s disease
  2. VEDOLIZUMAB [Suspect]
     Active Substance: VEDOLIZUMAB
  3. VEDOLIZUMAB [Suspect]
     Active Substance: VEDOLIZUMAB
  4. VEDOLIZUMAB [Suspect]
     Active Substance: VEDOLIZUMAB
  5. VEDOLIZUMAB [Suspect]
     Active Substance: VEDOLIZUMAB
  6. VEDOLIZUMAB [Suspect]
     Active Substance: VEDOLIZUMAB
  7. VEDOLIZUMAB [Suspect]
     Active Substance: VEDOLIZUMAB
     Indication: Crohn^s disease
     Dosage: 108 MILLIGRAM, Q2WEEKS
     Dates: start: 20220610
  8. RABEPRAZOLE [Concomitant]
     Active Substance: RABEPRAZOLE
  9. PREDNISONE [Concomitant]
     Active Substance: PREDNISONE
  10. MAGNESIUM [Concomitant]
     Active Substance: MAGNESIUM

REACTIONS (9)
  - Kidney infection [Unknown]
  - Pyelonephritis [Unknown]
  - Urosepsis [Unknown]
  - Cystitis [Unknown]
  - Sepsis [Unknown]
  - Urinary tract infection [Unknown]
  - Poor venous access [Unknown]
  - Dehydration [Unknown]
  - Product dose omission issue [Unknown]
